FAERS Safety Report 10641521 (Version 1)
Quarter: 2014Q4

REPORT INFORMATION
  Report Type: Other
  Country: DE (occurrence: DE)
  Receive Date: 20141209
  Receipt Date: 20141209
  Transmission Date: 20150529
  Serious: Yes (Other)
  Sender: FDA-Public Use
  Company Number: DE-MYLANLABS-2014M1012412

PATIENT

DRUGS (4)
  1. METOPROLOL [Suspect]
     Active Substance: METOPROLOL
     Indication: HYPERTENSION
     Dosage: 95 MG, QD (95 [MG/D ])
     Route: 064
     Dates: start: 20131103, end: 20140725
  2. METOPROLOL [Suspect]
     Active Substance: METOPROLOL
     Dosage: 95 MG/D, AFTER 4 DAYS INCREASED DOSAGE
     Route: 063
  3. CAPTOPRIL. [Concomitant]
     Active Substance: CAPTOPRIL
     Indication: HYPERTENSION
     Dosage: 5 [MG/D ]
     Route: 063
  4. ALDACTONE [Concomitant]
     Active Substance: SPIRONOLACTONE
     Indication: HYPERTENSION
     Dosage: 25 [MG/D ]
     Route: 063

REACTIONS (4)
  - Foetal exposure during pregnancy [Unknown]
  - Bradycardia neonatal [Recovered/Resolved]
  - Thrombocytopenia neonatal [Unknown]
  - Exposure during breast feeding [Unknown]
